FAERS Safety Report 10239926 (Version 3)
Quarter: 2014Q2

REPORT INFORMATION
  Report Type: Not Available
  Country: US (occurrence: US)
  Receive Date: 20140616
  Receipt Date: 20140618
  Transmission Date: 20141212
  Serious: Yes (Death, Hospitalization)
  Sender: FDA-Public Use
  Company Number: US-ONYX-2014-1143

PATIENT
  Age: 84 Year
  Sex: Female

DRUGS (1)
  1. KYPROLIS [Suspect]
     Indication: PLASMA CELL MYELOMA
     Route: 042
     Dates: start: 20130816

REACTIONS (2)
  - Plasma cell myeloma [Fatal]
  - Spinal fracture [Unknown]
